FAERS Safety Report 10041565 (Version 1)
Quarter: 2014Q1

REPORT INFORMATION
  Report Type: Spontaneous
  Country: US (occurrence: US)
  Receive Date: 20140327
  Receipt Date: 20140327
  Transmission Date: 20141002
  Serious: No
  Sender: FDA-Public Use
  Company Number: US-ASTRAZENECA-2013SE93058

PATIENT
  Sex: Female

DRUGS (2)
  1. NEXIUM [Suspect]
     Indication: OESOPHAGITIS
     Route: 048
     Dates: start: 201311
  2. CIPRO [Suspect]
     Route: 065

REACTIONS (6)
  - Decreased appetite [Unknown]
  - Dysphagia [Unknown]
  - Contrast media allergy [Unknown]
  - Dry mouth [Unknown]
  - Drug ineffective [Unknown]
  - Drug hypersensitivity [Unknown]
